FAERS Safety Report 26197204 (Version 1)
Quarter: 2025Q4

REPORT INFORMATION
  Report Type: Spontaneous
  Country: EU (occurrence: EU)
  Receive Date: 20251224
  Receipt Date: 20251224
  Transmission Date: 20260117
  Serious: Yes (Hospitalization)
  Sender: BAUSCH AND LOMB
  Company Number: EU-BAUSCH-BH-2025-022648

PATIENT
  Age: 45 Year
  Sex: Female

DRUGS (10)
  1. DEXAMETHASONE [Suspect]
     Active Substance: DEXAMETHASONE
     Indication: Stevens-Johnson syndrome
     Route: 065
  2. DEXAMETHASONE [Suspect]
     Active Substance: DEXAMETHASONE
     Indication: Drug hypersensitivity
  3. CLARITHROMYCIN [Suspect]
     Active Substance: CLARITHROMYCIN
     Indication: Pneumonia mycoplasmal
     Route: 065
  4. METHYLPREDNISOLONE [Suspect]
     Active Substance: METHYLPREDNISOLONE
     Indication: Stevens-Johnson syndrome
     Route: 065
  5. METHYLPREDNISOLONE [Suspect]
     Active Substance: METHYLPREDNISOLONE
     Indication: Drug hypersensitivity
     Dosage: DOSE REDUCED
     Route: 065
  6. OFLOXACIN [Concomitant]
     Active Substance: OFLOXACIN
     Indication: Stevens-Johnson syndrome
  7. OFLOXACIN [Concomitant]
     Active Substance: OFLOXACIN
     Indication: Drug hypersensitivity
  8. DOXYCYCLINE [Concomitant]
     Active Substance: DOXYCYCLINE
     Indication: Pneumonia mycoplasmal
  9. BETAMETHASONE [Concomitant]
     Active Substance: BETAMETHASONE
     Indication: Lip dry
  10. FUSIDIC ACID [Concomitant]
     Active Substance: FUSIDIC ACID
     Indication: Lip dry

REACTIONS (4)
  - Stevens-Johnson syndrome [Recovering/Resolving]
  - Drug hypersensitivity [Recovering/Resolving]
  - Insomnia [Recovering/Resolving]
  - Hyperhidrosis [Recovering/Resolving]
